FAERS Safety Report 8352421-2 (Version None)
Quarter: 2012Q2

REPORT INFORMATION
  Report Type: 
  Country: None (occurrence: None)
  Receive Date: 20120511
  Receipt Date: 20120504
  Transmission Date: 20120825
  Serious: Yes (Other)
  Sender: FDA-Public Use
  Company Number: PHHY2012BR038918

PATIENT
  Sex: Female

DRUGS (1)
  1. EXFORGE [Suspect]
     Dosage: (320/5 MG), UNK

REACTIONS (4)
  - HEADACHE [None]
  - ANEURYSM [None]
  - BLOOD PRESSURE INCREASED [None]
  - NECK PAIN [None]
